FAERS Safety Report 4344390-7 (Version None)
Quarter: 2004Q2

REPORT INFORMATION
  Report Type: 
  Country: None (occurrence: None)
  Receive Date: 20040419
  Receipt Date: 20040115
  Transmission Date: 20050107
  Serious: Yes (Death)
  Sender: FDA-Public Use
  Company Number: A-CH2004-05372

PATIENT
  Age: 42 Year
  Sex: Male
  Weight: 87.6 kg

DRUGS (8)
  1. TRACLEER [Suspect]
     Indication: PULMONARY HYPERTENSION
     Dosage: 62.5 MG, BID, ORAL; SEE IMAGE
     Route: 048
     Dates: start: 20030512, end: 20030608
  2. TRACLEER [Suspect]
     Indication: PULMONARY HYPERTENSION
     Dosage: 62.5 MG, BID, ORAL; SEE IMAGE
     Route: 048
     Dates: start: 20030609, end: 20031204
  3. PREDNISOLONE [Concomitant]
  4. LANSOPRAZOLE [Concomitant]
  5. WARFARIN SODIUM [Concomitant]
  6. AMILORIDE [Concomitant]
  7. BUMETANIDE [Concomitant]
  8. FERROUS SULPHATE (FERROUS SULFATE) [Concomitant]

REACTIONS (4)
  - BLOOD ALKALINE PHOSPHATASE INCREASED [None]
  - BLOOD BILIRUBIN INCREASED [None]
  - GAMMA-GLUTAMYLTRANSFERASE INCREASED [None]
  - LOWER RESPIRATORY TRACT INFECTION [None]
